FAERS Safety Report 19420372 (Version 1)
Quarter: 2021Q2

REPORT INFORMATION
  Report Type: Spontaneous
  Country: US (occurrence: US)
  Receive Date: 20210615
  Receipt Date: 20210615
  Transmission Date: 20210717
  Serious: Yes (Other)
  Sender: FDA-Public Use
  Company Number: US-MALLINCKRODT PHARMACEUTICALS-T202102516

PATIENT
  Age: 46 Year
  Sex: Female

DRUGS (17)
  1. H.P. ACTHAR [Suspect]
     Active Substance: CORTICOTROPIN
     Indication: OCULAR SARCOIDOSIS
     Dosage: 80 UNITS TWICE WEEKLY 2 WEEKS
     Route: 058
  2. MYCOPHENOLATE MOFETIL. [Concomitant]
     Active Substance: MYCOPHENOLATE MOFETIL
     Indication: OPTIC NEURITIS
  3. METHOTREXATE. [Concomitant]
     Active Substance: METHOTREXATE
     Indication: IRIDOCYCLITIS
  4. H.P. ACTHAR [Suspect]
     Active Substance: CORTICOTROPIN
     Indication: OPTIC NEURITIS
     Dosage: 40 UNITS WEEKLY FOR 3 MONTHS
     Route: 058
  5. MYCOPHENOLATE MOFETIL. [Concomitant]
     Active Substance: MYCOPHENOLATE MOFETIL
     Indication: IRIDOCYCLITIS
  6. AZATHIOPRINE. [Concomitant]
     Active Substance: AZATHIOPRINE
     Indication: OCULAR SARCOIDOSIS
     Dosage: UNK
     Route: 065
  7. H.P. ACTHAR [Suspect]
     Active Substance: CORTICOTROPIN
     Indication: IRIDOCYCLITIS
     Dosage: 80 UNITS ONCE WEEKLY FOR2 WEEKS
     Route: 058
  8. MYCOPHENOLATE MOFETIL. [Concomitant]
     Active Substance: MYCOPHENOLATE MOFETIL
     Indication: OCULAR SARCOIDOSIS
     Dosage: UNK
     Route: 065
  9. METHYLPREDNISOLONE. [Concomitant]
     Active Substance: METHYLPREDNISOLONE
     Indication: OPTIC NEURITIS
  10. PREDNISONE. [Concomitant]
     Active Substance: PREDNISONE
     Indication: IRIDOCYCLITIS
  11. METHOTREXATE. [Concomitant]
     Active Substance: METHOTREXATE
     Indication: OCULAR SARCOIDOSIS
     Dosage: UNK
     Route: 065
  12. METHYLPREDNISOLONE. [Concomitant]
     Active Substance: METHYLPREDNISOLONE
     Indication: OCULAR SARCOIDOSIS
     Dosage: UNK
     Route: 042
  13. PREDNISONE. [Concomitant]
     Active Substance: PREDNISONE
     Indication: OCULAR SARCOIDOSIS
     Dosage: UNK
     Route: 048
  14. PREDNISONE. [Concomitant]
     Active Substance: PREDNISONE
     Indication: OPTIC NEURITIS
     Dosage: UNK, TAPER
     Route: 048
  15. METHOTREXATE. [Concomitant]
     Active Substance: METHOTREXATE
     Indication: OPTIC NEURITIS
  16. AZATHIOPRINE. [Concomitant]
     Active Substance: AZATHIOPRINE
     Indication: IRIDOCYCLITIS
  17. METHYLPREDNISOLONE. [Concomitant]
     Active Substance: METHYLPREDNISOLONE
     Indication: IRIDOCYCLITIS
     Dosage: UNK
     Route: 048

REACTIONS (5)
  - Condition aggravated [Unknown]
  - Skin hyperpigmentation [Unknown]
  - Therapeutic product effect incomplete [Unknown]
  - Ocular sarcoidosis [Unknown]
  - Hypertension [Unknown]
